FAERS Safety Report 5360131-9 (Version None)
Quarter: 2007Q2

REPORT INFORMATION
  Report Type: 
  Country: None (occurrence: None)
  Receive Date: 20070612
  Receipt Date: 20070531
  Transmission Date: 20071010
  Serious: Yes (Hospitalization)
  Sender: FDA-Public Use
  Company Number: 234017K07USA

PATIENT
  Age: 50 Year
  Sex: Female

DRUGS (21)
  1. REBIF [Suspect]
     Indication: MULTIPLE SCLEROSIS
     Dosage: 8.8 MCG, 3 IN 1 WEEKS, SUBCUTANEOUS
     Route: 058
     Dates: start: 20070503, end: 20070510
  2. IBUPROFEN [Concomitant]
  3. BACLOFEN [Concomitant]
  4. TRILEPTAL [Concomitant]
  5. MIRAPEX (PARAMIPEXOLE DIHYDROCHLORIDE) [Concomitant]
  6. PROVIGIL [Concomitant]
  7. ALLEGRA (FEXONFENADINE HYDROCHLORIDE) [Concomitant]
  8. NASACORT [Concomitant]
  9. BISOPROLOL (BISOPROLOL /00802601) [Concomitant]
  10. UROXATRAL [Concomitant]
  11. DITROPAN XL (OXYBUTYNIN /00538901/) [Concomitant]
  12. CYCLOBENZAPRINE HCL [Concomitant]
  13. FUROSEMIDE [Concomitant]
  14. NEXIUM [Concomitant]
  15. LACTULOSE [Concomitant]
  16. HYDROCODONE (HYDROCODONE) [Concomitant]
  17. BACTRIM [Concomitant]
  18. PROMETHAZINE [Concomitant]
  19. ASCORBIC ACID [Concomitant]
  20. ARICEPT [Concomitant]
  21. CONTINUOUS POSSITIVE AIRWAY PRESSURE (ALL OTHER THERAPEUTIC PRODUCTS) [Concomitant]

REACTIONS (17)
  - ALANINE AMINOTRANSFERASE INCREASED [None]
  - ANAEMIA [None]
  - ASPARTATE AMINOTRANSFERASE INCREASED [None]
  - BLOOD ALKALINE PHOSPHATASE INCREASED [None]
  - DISEASE PROGRESSION [None]
  - DYSPNOEA [None]
  - HAEMATOCRIT DECREASED [None]
  - HAEMOGLOBIN DECREASED [None]
  - HYPONATRAEMIA [None]
  - JOINT SWELLING [None]
  - LIP SWELLING [None]
  - MULTIPLE SCLEROSIS [None]
  - NAUSEA [None]
  - OEDEMA PERIPHERAL [None]
  - SWELLING FACE [None]
  - URINARY RETENTION [None]
  - URINARY TRACT INFECTION [None]
